FAERS Safety Report 20214668 (Version 2)
Quarter: 2021Q4

REPORT INFORMATION
  Report Type: Spontaneous
  Country: VN (occurrence: VN)
  Receive Date: 20211221
  Receipt Date: 20211226
  Transmission Date: 20220303
  Serious: Yes (Other)
  Sender: FDA-Public Use
  Company Number: VN-NOVEN PHARMACEUTICALS, INC.-2021-NOV-VN004051

PATIENT
  Age: 48 Year
  Sex: Female
  Weight: 66.698 kg

DRUGS (1)
  1. LIDOCAINE [Suspect]
     Active Substance: LIDOCAINE
     Indication: Local anaesthesia
     Dosage: 10 ML OF 2 %
     Route: 065

REACTIONS (1)
  - Local anaesthetic systemic toxicity [Recovered/Resolved]
